FAERS Safety Report 9069997 (Version 1)
Quarter: 2013Q1

REPORT INFORMATION
  Report Type: Report from Study
  Country: US (occurrence: US)
  Receive Date: 20130129
  Receipt Date: 20130129
  Transmission Date: 20140127
  Serious: No
  Sender: FDA-Public Use
  Company Number: US-ABBOTT-12P-163-0941011-00

PATIENT
  Sex: Female
  Weight: 81.27 kg

DRUGS (4)
  1. HUMIRA 40 MG/0.8 ML PEN [Suspect]
     Indication: CROHN^S DISEASE
     Dates: start: 201204, end: 201204
  2. HUMIRA 40 MG/0.8 ML PEN [Suspect]
  3. HUMIRA 40 MG/0.8 ML PEN [Suspect]
  4. YAZ [Concomitant]
     Indication: CONTRACEPTION

REACTIONS (7)
  - Photophobia [Not Recovered/Not Resolved]
  - Crohn^s disease [Not Recovered/Not Resolved]
  - Gastrointestinal pain [Not Recovered/Not Resolved]
  - Diarrhoea [Not Recovered/Not Resolved]
  - Vomiting [Not Recovered/Not Resolved]
  - Abdominal distension [Not Recovered/Not Resolved]
  - Migraine [Not Recovered/Not Resolved]
